FAERS Safety Report 14898612 (Version 2)
Quarter: 2018Q2

REPORT INFORMATION
  Report Type: Report from Study
  Country: CA (occurrence: CA)
  Receive Date: 20180515
  Receipt Date: 20180517
  Transmission Date: 20180711
  Serious: Yes (Hospitalization, Other)
  Sender: FDA-Public Use
  Company Number: CA-ROCHE-2124554

PATIENT
  Sex: Female
  Weight: 57 kg

DRUGS (20)
  1. ACTEMRA [Suspect]
     Active Substance: TOCILIZUMAB
     Indication: RHEUMATOID ARTHRITIS
     Route: 058
     Dates: start: 2016
  2. ZOPICLONE [Concomitant]
     Active Substance: ZOPICLONE
  3. METHYLPREDNISOLONE. [Concomitant]
     Active Substance: METHYLPREDNISOLONE
     Route: 042
     Dates: start: 20090730, end: 20090813
  4. PREDNISONE. [Suspect]
     Active Substance: PREDNISONE
     Indication: PRODUCT USED FOR UNKNOWN INDICATION
     Route: 065
  5. PLAQUENIL [Concomitant]
     Active Substance: HYDROXYCHLOROQUINE SULFATE
  6. ACETAMINOPHEN. [Concomitant]
     Active Substance: ACETAMINOPHEN
     Route: 048
     Dates: start: 20090730, end: 20090813
  7. ACTEMRA [Suspect]
     Active Substance: TOCILIZUMAB
     Indication: RHEUMATOID ARTHRITIS
     Route: 042
     Dates: start: 20111115, end: 20150407
  8. MAVIK [Concomitant]
     Active Substance: TRANDOLAPRIL
  9. LYRICA [Concomitant]
     Active Substance: PREGABALIN
  10. VALTREX [Concomitant]
     Active Substance: VALACYCLOVIR HYDROCHLORIDE
  11. FENTANYL. [Concomitant]
     Active Substance: FENTANYL
     Dosage: PATCH
     Route: 062
  12. PANTOLOC [Concomitant]
     Active Substance: PANTOPRAZOLE SODIUM
  13. METHOTREXATE. [Concomitant]
     Active Substance: METHOTREXATE
  14. NORTRIPTYLINE [Concomitant]
     Active Substance: NORTRIPTYLINE
  15. ACTEMRA [Suspect]
     Active Substance: TOCILIZUMAB
     Route: 058
     Dates: start: 2018
  16. RITUXAN [Suspect]
     Active Substance: RITUXIMAB
     Indication: RHEUMATOID ARTHRITIS
     Dosage: DAY 1 AND 15
     Route: 042
     Dates: start: 20081105, end: 20090813
  17. NAPROXEN. [Concomitant]
     Active Substance: NAPROXEN
     Route: 065
  18. DIPHENHYDRAMINE HCL [Concomitant]
     Active Substance: DIPHENHYDRAMINE HYDROCHLORIDE
     Route: 048
     Dates: start: 20090730, end: 20090813
  19. FOLIC ACID. [Concomitant]
     Active Substance: FOLIC ACID
  20. HYDROMORPHONE [Concomitant]
     Active Substance: HYDROMORPHONE

REACTIONS (5)
  - Joint range of motion decreased [Unknown]
  - Pain [Unknown]
  - Hand deformity [Unknown]
  - Stomatitis [Unknown]
  - Tendon rupture [Unknown]

NARRATIVE: CASE EVENT DATE: 2016
